FAERS Safety Report 26208071 (Version 1)
Quarter: 2025Q4

REPORT INFORMATION
  Report Type: Spontaneous
  Country: US (occurrence: US)
  Receive Date: 20251229
  Receipt Date: 20251229
  Transmission Date: 20260118
  Serious: Yes (Death, Life-Threatening, Hospitalization, Other)
  Sender: AMGEN
  Company Number: US-AMGEN-USASP2025253678

PATIENT

DRUGS (1)
  1. RITUXIMAB [Suspect]
     Active Substance: RITUXIMAB
     Indication: Connective tissue disease-associated interstitial lung disease
     Dosage: UNK
     Route: 065

REACTIONS (12)
  - Death [Fatal]
  - Pulmonary hypertension [Unknown]
  - Myocardial infarction [Unknown]
  - Atrial fibrillation [Unknown]
  - Respiratory failure [Unknown]
  - Dependence on oxygen therapy [Unknown]
  - Pneumonia [Unknown]
  - Mechanical ventilation [Unknown]
  - Intensive care [Unknown]
  - Adrenocortical steroid therapy [Unknown]
  - Emergency care [Unknown]
  - Off label use [Unknown]
